FAERS Safety Report 11468452 (Version 2)
Quarter: 2015Q3

REPORT INFORMATION
  Report Type: Spontaneous
  Country: US (occurrence: US)
  Receive Date: 20150903
  Receipt Date: 20150903
  Transmission Date: 20151125
  Serious: No
  Sender: FDA-Public Use
  Company Number: US-ELI_LILLY_AND_COMPANY-US201109002796

PATIENT
  Sex: Female

DRUGS (1)
  1. CYMBALTA [Suspect]
     Active Substance: DULOXETINE HYDROCHLORIDE
     Indication: NEURALGIA
     Dosage: 60 MG, QD

REACTIONS (8)
  - Pain in extremity [Recovering/Resolving]
  - Neuropathy peripheral [Unknown]
  - Retching [Unknown]
  - Dyskinesia [Unknown]
  - Somnolence [Unknown]
  - Feeling hot [Unknown]
  - Anxiety [Unknown]
  - Bone disorder [Unknown]
